FAERS Safety Report 9920849 (Version 2)
Quarter: 2014Q1

REPORT INFORMATION
  Report Type: Report from Study
  Country: CA (occurrence: CA)
  Receive Date: 20140225
  Receipt Date: 20140225
  Transmission Date: 20141002
  Serious: Yes (Other)
  Sender: FDA-Public Use
  Company Number: CA-ROCHE-1350461

PATIENT
  Age: 41 Year
  Sex: Female
  Weight: 64.88 kg

DRUGS (12)
  1. RITUXAN [Suspect]
     Indication: RHEUMATOID ARTHRITIS
     Route: 042
     Dates: start: 20130523
  2. FOLIC ACID [Concomitant]
  3. SULFASALAZINE [Concomitant]
  4. ACETAMINOPHEN [Concomitant]
     Indication: PREMEDICATION
     Route: 048
     Dates: start: 20130523
  5. PREDNISONE [Concomitant]
     Indication: PREMEDICATION
     Dosage: THE NIGHT BEFORE
     Route: 048
     Dates: start: 20130523
  6. DIPHENHYDRAMINE HCL [Concomitant]
     Indication: PREMEDICATION
     Route: 048
     Dates: start: 20130523
  7. METHOTREXATE [Concomitant]
  8. SYNTHROID [Concomitant]
  9. ATACAND [Concomitant]
  10. ZOLOFT [Concomitant]
  11. LOSEC [Concomitant]
  12. NAPROXEN [Concomitant]

REACTIONS (2)
  - Pneumonia [Unknown]
  - Haemoptysis [Unknown]
